FAERS Safety Report 17286807 (Version 2)
Quarter: 2020Q1

REPORT INFORMATION
  Report Type: Report from Study
  Country: None (occurrence: DE)
  Receive Date: 20200119
  Receipt Date: 20200210
  Transmission Date: 20200409
  Serious: Yes (Death, Other)
  Sender: FDA-Public Use
  Company Number: DE-ABBVIE-20K-062-3237689-00

PATIENT

DRUGS (2)
  1. IMBRUVICA [Suspect]
     Active Substance: IBRUTINIB
     Indication: CHRONIC LYMPHOCYTIC LEUKAEMIA
     Route: 048
  2. OBINUTUZUMAB. [Suspect]
     Active Substance: OBINUTUZUMAB
     Indication: CHRONIC LYMPHOCYTIC LEUKAEMIA
     Route: 065

REACTIONS (35)
  - Immunodeficiency [Unknown]
  - Infected bite [Unknown]
  - Pneumonia fungal [Unknown]
  - Pneumonia influenzal [Unknown]
  - Basal cell carcinoma [Unknown]
  - Febrile neutropenia [Unknown]
  - Blindness [Unknown]
  - Aneurysm [Unknown]
  - Hypertension [Unknown]
  - Adverse event [Unknown]
  - Thrombocytopenia [Unknown]
  - Pneumonia [Unknown]
  - Polyserositis [Unknown]
  - Staphylococcal bacteraemia [Unknown]
  - Brain neoplasm [Unknown]
  - Demyelinating polyneuropathy [Unknown]
  - Immune thrombocytopenic purpura [Unknown]
  - Inguinal hernia [Unknown]
  - Cholangitis [Unknown]
  - Cholestasis [Unknown]
  - Febrile infection [Unknown]
  - Gamma-glutamyltransferase increased [Unknown]
  - Infection [Fatal]
  - Neutropenia [Unknown]
  - Cystitis [Unknown]
  - Forearm fracture [Unknown]
  - Anal cancer [Unknown]
  - Cataract [Unknown]
  - Gastrointestinal polyp haemorrhage [Unknown]
  - Gout [Unknown]
  - Carotid artery stenosis [Unknown]
  - Hypertonia [Unknown]
  - Ventricular extrasystoles [Unknown]
  - Pneumonia bacterial [Unknown]
  - Bladder cancer [Unknown]
